FAERS Safety Report 14482660 (Version 2)
Quarter: 2018Q1

REPORT INFORMATION
  Report Type: Spontaneous
  Country: US (occurrence: US)
  Receive Date: 20180203
  Receipt Date: 20180221
  Transmission Date: 20180509
  Serious: Yes (Hospitalization)
  Sender: FDA-Public Use
  Company Number: US-ROCHE-2067953

PATIENT
  Sex: Male

DRUGS (13)
  1. METRONIDAZOLE. [Concomitant]
     Active Substance: METRONIDAZOLE
     Route: 048
     Dates: start: 20180115
  2. FOLIC ACID. [Concomitant]
     Active Substance: FOLIC ACID
     Dosage: 1 TAB BID
     Route: 048
  3. SODIUM CHLORIDE. [Concomitant]
     Active Substance: SODIUM CHLORIDE
     Route: 048
  4. PREDNISONE. [Suspect]
     Active Substance: PREDNISONE
     Indication: PRODUCT USED FOR UNKNOWN INDICATION
     Dosage: TAKING 15 MG DAILY
     Route: 048
     Dates: start: 20170801
  5. ACTEMRA [Suspect]
     Active Substance: TOCILIZUMAB
     Indication: TEMPORAL ARTERITIS
     Dosage: ONGOING:NO?LAST DOSE OF ACTEMRA WAS RECEIVED ON 27/NOV/2017
     Route: 058
     Dates: start: 20170821, end: 20171127
  6. ALENDRONATE SODIUM. [Concomitant]
     Active Substance: ALENDRONATE SODIUM
     Dosage: TK 1 T PO Q WEEK.
     Route: 048
     Dates: start: 20170717
  7. ASPIRIN. [Concomitant]
     Active Substance: ASPIRIN
     Route: 048
  8. HEPARIN (PORCINE) [Concomitant]
     Dosage: 10 UNIT/ML SOLN
     Route: 065
  9. INVANZ [Concomitant]
     Active Substance: ERTAPENEM SODIUM
     Route: 065
  10. FOSAMAX [Concomitant]
     Active Substance: ALENDRONATE SODIUM
     Route: 048
  11. BENADRYL ALLERGY [Concomitant]
     Active Substance: DIPHENHYDRAMINE HYDROCHLORIDE
     Dosage: TAKE 1 TABLET EVERY 4 TO 6 HOURS AS NEEDED.
     Route: 048
  12. THIAMINE. [Concomitant]
     Active Substance: THIAMINE
     Route: 048
  13. OMEPRAZOLE. [Concomitant]
     Active Substance: OMEPRAZOLE
     Route: 048
     Dates: start: 20170530

REACTIONS (1)
  - Diverticular perforation [Recovered/Resolved with Sequelae]
